FAERS Safety Report 6043720-8 (Version None)
Quarter: 2009Q1

REPORT INFORMATION
  Report Type: 
  Country: None (occurrence: None)
  Receive Date: 20090115
  Receipt Date: 20080114
  Transmission Date: 20090719
  Serious: Yes (Hospitalization)
  Sender: FDA-Public Use
  Company Number: 541824

PATIENT
  Age: 10 Year
  Sex: Male

DRUGS (3)
  1. CEFTRIAXONE SODIUM     (CEFTRIAXONE SODIUM) [Suspect]
     Indication: DRUG USE FOR UNKNOWN INDICATION
     Dosage: 1 PER ONE DOSE INTRAVENOUS
     Route: 042
  2. CLINDAMYCIN HCL [Concomitant]
  3. CEPHALEXIN [Concomitant]

REACTIONS (7)
  - CONDITION AGGRAVATED [None]
  - HAEMOLYSIS [None]
  - MENTAL STATUS CHANGES [None]
  - RASH MACULO-PAPULAR [None]
  - RENAL FAILURE ACUTE [None]
  - SKIN INFECTION [None]
  - SWELLING FACE [None]
